FAERS Safety Report 10216017 (Version 1)
Quarter: 2014Q2

REPORT INFORMATION
  Report Type: Spontaneous
  Country: JP (occurrence: JP)
  Receive Date: 20140604
  Receipt Date: 20140604
  Transmission Date: 20141212
  Serious: Yes (Other)
  Sender: FDA-Public Use
  Company Number: JP-MYLANLABS-2014S1012337

PATIENT
  Age: 11 Year
  Sex: Male

DRUGS (5)
  1. CARBOPLATIN [Suspect]
     Indication: MEDULLOBLASTOMA
     Route: 041
  2. CISPLATIN [Suspect]
     Indication: MEDULLOBLASTOMA
     Route: 041
  3. ENDOXAN [Suspect]
     Indication: MEDULLOBLASTOMA
     Route: 041
  4. ONCOVIN [Suspect]
     Indication: MEDULLOBLASTOMA
     Route: 041
  5. CO-TRIMOXAZOLE [Concomitant]
     Indication: ANTIFUNGAL PROPHYLAXIS
     Route: 048

REACTIONS (5)
  - Stomatitis [Unknown]
  - Vomiting [Unknown]
  - Device related infection [Unknown]
  - Pneumocystis jirovecii pneumonia [Unknown]
  - Hearing impaired [Unknown]
